FAERS Safety Report 6370810-2 (Version None)
Quarter: 2009Q3

REPORT INFORMATION
  Report Type: 
  Country: None (occurrence: None)
  Receive Date: 20090923
  Receipt Date: 20070626
  Transmission Date: 20100115
  Serious: Yes (Other)
  Sender: FDA-Public Use
  Company Number: US-ASTRAZENECA-2006UW24062

PATIENT
  Age: 15195 Day
  Sex: Male
  Weight: 122.5 kg

DRUGS (29)
  1. SEROQUEL [Suspect]
     Indication: PSYCHOTIC DISORDER
     Route: 048
     Dates: start: 19980101
  2. SEROQUEL [Suspect]
     Indication: HALLUCINATION, AUDITORY
     Route: 048
     Dates: start: 19980101
  3. SEROQUEL [Suspect]
     Dosage: 400 MG - 800 MG DAILY
     Route: 048
     Dates: start: 19990831
  4. SEROQUEL [Suspect]
     Dosage: 400 MG - 800 MG DAILY
     Route: 048
     Dates: start: 19990831
  5. CLOZARIL [Concomitant]
  6. HALDOL [Concomitant]
  7. RISPERDAL [Concomitant]
     Indication: HALLUCINATION, AUDITORY
     Dosage: 4 - 6 MG AT NIGHT
     Dates: start: 20010719
  8. RISPERDAL [Concomitant]
     Indication: NEGATIVE THOUGHTS
     Dosage: 4 - 6 MG AT NIGHT
     Dates: start: 20010719
  9. ZYPREXA [Concomitant]
     Dates: start: 19980101, end: 19990101
  10. LITHIUM [Concomitant]
     Indication: MOOD SWINGS
  11. LITHIUM [Concomitant]
     Indication: AGGRESSION
  12. LITHIUM [Concomitant]
     Dates: start: 20010719
  13. LITHIUM [Concomitant]
     Dates: start: 20010719
  14. KLONOPIN [Concomitant]
     Dosage: 2 IN MORNING AND 4 AT NIGHT
     Dates: start: 19980511
  15. PROZAC [Concomitant]
     Dates: start: 19980511
  16. GLYBURIDE [Concomitant]
     Dates: start: 19980511
  17. DEPAKOTE [Concomitant]
     Dates: start: 19990831
  18. WELLBUTRIN [Concomitant]
     Dates: start: 19990831
  19. EFFEXOR [Concomitant]
     Dates: start: 19990831
  20. CELEXA [Concomitant]
     Indication: DEPRESSION
     Dates: start: 19990831
  21. NEURONTIN [Concomitant]
     Dates: start: 19990831
  22. TEGRETOL [Concomitant]
     Indication: MOOD SWINGS
     Dosage: 400 - 800 MG DAILY
     Dates: start: 20010719
  23. REMERON [Concomitant]
     Dates: start: 20010719
  24. GLUCOPHAGE [Concomitant]
     Dates: start: 20010903
  25. RESPITAL [Concomitant]
     Dates: start: 20010903
  26. CLONIDINE [Concomitant]
     Dates: start: 20050204
  27. INSULIN [Concomitant]
     Dates: start: 20050104
  28. BENICAR [Concomitant]
     Dates: start: 20050311
  29. ACTOS [Concomitant]
     Dates: start: 20050311

REACTIONS (7)
  - CEREBROVASCULAR ACCIDENT [None]
  - DIABETES MELLITUS [None]
  - DIABETIC COMA [None]
  - DIABETIC KETOACIDOSIS [None]
  - TYPE 1 DIABETES MELLITUS [None]
  - TYPE 2 DIABETES MELLITUS [None]
  - VISION BLURRED [None]
